FAERS Safety Report 4514895-4 (Version None)
Quarter: 2004Q4

REPORT INFORMATION
  Report Type: 
  Country: None (occurrence: None)
  Receive Date: 20041126
  Receipt Date: 20041111
  Transmission Date: 20050328
  Serious: Yes (Other)
  Sender: FDA-Public Use
  Company Number: 2004091440

PATIENT
  Age: 78 Year
  Sex: Female

DRUGS (4)
  1. LIPITOR [Suspect]
     Indication: DYSLIPIDAEMIA
     Dosage: 10 MG (10 MG, 1 IN 1 D) ORAL
     Route: 048
     Dates: start: 20020701
  2. METFORMIN HCL [Concomitant]
  3. ACARBOSE [Concomitant]
  4. INSULIN [Concomitant]

REACTIONS (2)
  - HAEMORRHAGE [None]
  - INTESTINAL POLYP [None]
